FAERS Safety Report 9773224 (Version 1)
Quarter: 2013Q4

REPORT INFORMATION
  Report Type: Spontaneous
  Country: US (occurrence: US)
  Receive Date: 20131219
  Receipt Date: 20131219
  Transmission Date: 20140711
  Serious: No
  Sender: FDA-Public Use
  Company Number: US-TEVA-445298USA

PATIENT
  Sex: Male

DRUGS (1)
  1. QVAR [Suspect]
     Dosage: 160 MICROGRAM DAILY;
     Route: 055
     Dates: end: 20130422

REACTIONS (3)
  - Dyspnoea [Unknown]
  - Asthma [Unknown]
  - Drug ineffective [Unknown]
